FAERS Safety Report 11394723 (Version 1)
Quarter: 2015Q3

REPORT INFORMATION
  Report Type: Spontaneous
  Country: US (occurrence: None)
  Receive Date: 20150817
  Receipt Date: 20150817
  Transmission Date: 20151125
  Serious: No
  Sender: FDA-Public Use
  Company Number: PR 14536

PATIENT
  Age: 63 Year
  Sex: Female
  Weight: 53 kg

DRUGS (2)
  1. ZIOPTAN [Suspect]
     Active Substance: TAFLUPROST
     Indication: GLAUCOMA
     Dosage: 1 DROP IN EACH EYE
     Dates: start: 1995
  2. COSOPT (DORZOLAMIDE HYDROCHLORIDE (+) TIMOLOL MALEATE) [Concomitant]

REACTIONS (2)
  - Spinal cord operation [None]
  - Cataract [None]

NARRATIVE: CASE EVENT DATE: 2012
